FAERS Safety Report 9101110 (Version 1)
Quarter: 2013Q1

REPORT INFORMATION
  Report Type: Report from Study
  Country: BE (occurrence: BE)
  Receive Date: 20130218
  Receipt Date: 20130218
  Transmission Date: 20140127
  Serious: Yes (Other)
  Sender: FDA-Public Use
  Company Number: BE-ROCHE-1174485

PATIENT
  Sex: 0

DRUGS (1)
  1. ALTEPLASE [Suspect]
     Indication: ACUTE MYOCARDIAL INFARCTION
     Route: 040

REACTIONS (12)
  - Haemorrhage [Unknown]
  - Blood pressure systolic decreased [Unknown]
  - Atrial fibrillation [Unknown]
  - Ventricular fibrillation [Unknown]
  - Transient ischaemic attack [Unknown]
  - Puncture site haemorrhage [Unknown]
  - Pulmonary oedema [Unknown]
  - Bradycardia [Unknown]
  - Atrioventricular block [Unknown]
  - Arrhythmia [Unknown]
  - Cardiogenic shock [Unknown]
  - Chest pain [Unknown]
